FAERS Safety Report 6176269-2 (Version None)
Quarter: 2009Q2

REPORT INFORMATION
  Report Type: 
  Country: None (occurrence: None)
  Receive Date: 20090501
  Receipt Date: 20090421
  Transmission Date: 20091009
  Serious: Yes (Hospitalization, Other)
  Sender: FDA-Public Use
  Company Number: B0571669A

PATIENT
  Sex: Male

DRUGS (12)
  1. ZIAGEN [Suspect]
     Indication: ACQUIRED IMMUNODEFICIENCY SYNDROME
     Dosage: 300MG TWICE PER DAY
     Route: 048
     Dates: start: 19991025, end: 19991031
  2. ZIAGEN [Suspect]
     Route: 048
     Dates: start: 19991101, end: 20040331
  3. ZIAGEN [Suspect]
     Dosage: 300MG TWICE PER DAY
     Route: 048
     Dates: start: 20040401, end: 20040527
  4. ZIAGEN [Suspect]
     Dosage: 600MG PER DAY
     Route: 048
     Dates: start: 20040528
  5. VIREAD [Suspect]
     Indication: ACQUIRED IMMUNODEFICIENCY SYNDROME
     Route: 048
     Dates: start: 20040528, end: 20080223
  6. BAKTAR [Suspect]
     Dates: start: 20080220, end: 20080223
  7. STOCRIN [Concomitant]
     Indication: ACQUIRED IMMUNODEFICIENCY SYNDROME
     Dosage: 600MG PER DAY
     Route: 048
     Dates: start: 19991025, end: 19991031
  8. STOCRIN [Concomitant]
     Route: 048
     Dates: start: 19991101
  9. ITRIZOLE [Concomitant]
     Indication: BRONCHOPULMONARY ASPERGILLOSIS
     Dosage: 200MG PER DAY
     Route: 048
     Dates: start: 20070401, end: 20070822
  10. ITRIZOLE [Concomitant]
     Dosage: 200MG PER DAY
     Route: 048
     Dates: start: 20080317
  11. KOGENATE [Concomitant]
     Dates: start: 20070401, end: 20070417
  12. UNKNOWN DRUG [Concomitant]
     Dates: start: 20070418

REACTIONS (7)
  - BETA 2 MICROGLOBULIN URINE INCREASED [None]
  - BLOOD CREATININE INCREASED [None]
  - CREATININE RENAL CLEARANCE DECREASED [None]
  - DYSPNOEA [None]
  - PNEUMOCYSTIS JIROVECI PNEUMONIA [None]
  - PYREXIA [None]
  - RENAL IMPAIRMENT [None]
